FAERS Safety Report 18046190 (Version 1)
Quarter: 2020Q3

REPORT INFORMATION
  Report Type: Spontaneous
  Country: CN (occurrence: CN)
  Receive Date: 20200720
  Receipt Date: 20200720
  Transmission Date: 20201103
  Serious: Yes (Other)
  Sender: FDA-Public Use
  Company Number: NVSC2020CN202432

PATIENT
  Age: 9 Year

DRUGS (1)
  1. TRILEPTAL [Suspect]
     Active Substance: OXCARBAZEPINE
     Indication: BENIGN ROLANDIC EPILEPSY
     Route: 048

REACTIONS (1)
  - Drug withdrawal convulsions [Unknown]
